FAERS Safety Report 5806267-7 (Version None)
Quarter: 2008Q3

REPORT INFORMATION
  Report Type: 
  Country: None (occurrence: None)
  Receive Date: 20080710
  Receipt Date: 20080703
  Transmission Date: 20090109
  Serious: Yes (Death)
  Sender: FDA-Public Use
  Company Number: US-PURDUE-USA_2008_0033829

PATIENT
  Age: 65 Year
  Sex: Female

DRUGS (2)
  1. OXYCONTIN [Suspect]
     Indication: PAIN
     Dosage: UNK MG, PRN
     Route: 048
  2. OXYIR CAPSULES 5 MG [Suspect]
     Indication: PAIN
     Dosage: UNK MG, PRN
     Route: 048

REACTIONS (1)
  - DEATH [None]
